FAERS Safety Report 5052767-X (Version None)
Quarter: 2006Q3

REPORT INFORMATION
  Report Type: 
  Country: None (occurrence: None)
  Receive Date: 20060717
  Receipt Date: 20060628
  Transmission Date: 20061208
  Serious: Yes (Hospitalization)
  Sender: FDA-Public Use
  Company Number: JP-ROCHE-453545

PATIENT
  Age: 68 Year
  Sex: Male

DRUGS (37)
  1. PANALDINE [Suspect]
     Indication: THROMBOSIS PROPHYLAXIS
     Dosage: ADDITIONAL INDICATION: STENT PLACEMENT, ACUTE MYOCARDIAL INFARCTION
     Route: 048
     Dates: start: 20060513, end: 20060609
  2. ASPIRIN [Concomitant]
     Route: 048
     Dates: start: 20060513
  3. GASTER [Concomitant]
     Route: 048
     Dates: start: 20060513, end: 20060609
  4. LASIX [Concomitant]
     Route: 048
  5. CERCINE [Concomitant]
     Dates: start: 20060512, end: 20060609
  6. CYTOTEC [Concomitant]
     Dates: start: 20060514
  7. LOXONIN [Concomitant]
     Dates: start: 20060514
  8. LASIX [Concomitant]
     Dates: start: 20060517
  9. ALDACTONE [Concomitant]
     Dates: start: 20060517
  10. SLOW-K [Concomitant]
     Dates: start: 20060517, end: 20060620
  11. MICARDIS [Concomitant]
     Dates: start: 20060518, end: 20060604
  12. BISOLVON [Concomitant]
     Dates: start: 20060518, end: 20060523
  13. VENETLIN [Concomitant]
     Dates: start: 20060518, end: 20060519
  14. RHYTHMY [Concomitant]
     Dosage: TAKEN PRN
     Dates: start: 20060518
  15. ACETAMINOPHEN [Concomitant]
     Dosage: TAKEN PRN
     Dates: start: 20060514
  16. HALCION [Concomitant]
     Dosage: TAKEN AS PRN.
     Dates: start: 20060522, end: 20060609
  17. WARFARIN SODIUM [Concomitant]
     Dates: start: 20060523, end: 20060609
  18. AMARYL [Concomitant]
     Dates: start: 20060527, end: 20060609
  19. MAGNESIUM OXIDE [Concomitant]
     Dates: start: 20060513, end: 20060529
  20. GRAMALIL [Concomitant]
     Dates: start: 20060513, end: 20060529
  21. LIPITOR [Concomitant]
     Dates: start: 20060513, end: 20060529
  22. SOLITA [Concomitant]
     Dates: start: 20060513, end: 20060525
  23. HEPARIN [Concomitant]
     Dates: start: 20060513, end: 20060525
  24. SIGMART [Concomitant]
     Dates: start: 20060513, end: 20060516
  25. SODIUM CHLORIDE [Concomitant]
     Dates: start: 20060513, end: 20060521
  26. CEFAMEZIN [Concomitant]
     Dates: start: 20060513, end: 20060513
  27. GLUCOSE [Concomitant]
     Dates: start: 20060513, end: 20060523
  28. VITAMEDIN [Concomitant]
     Dates: start: 20060513, end: 20060516
  29. VISCORIN [Concomitant]
     Dates: start: 20060513, end: 20060513
  30. ALBUMIN [Concomitant]
     Dates: start: 20060415, end: 20060516
  31. INOVAN [Concomitant]
     Dates: start: 20060514, end: 20060516
  32. MEROPEN [Concomitant]
     Dates: start: 20060514, end: 20060523
  33. VENOGLOBULIN [Concomitant]
     Dates: start: 20060515, end: 20060517
  34. SOLU-MEDROL [Concomitant]
     Dates: start: 20060515, end: 20060517
  35. 1 CONCOMITANT DRUG [Concomitant]
     Dosage: DOPUTAMIN (DOBUTAMINE HYDROCHLORIDE).  600MCG/200ML
     Dates: start: 20060515, end: 20060519
  36. ELASPOL [Concomitant]
     Dates: start: 20060516, end: 20060521
  37. CLINDAMYCIN HCL [Concomitant]
     Dates: start: 20060519, end: 20060523

REACTIONS (3)
  - GRANULOCYTOPENIA [None]
  - LIVER DISORDER [None]
  - NEUTROPENIA [None]
